FAERS Safety Report 4504212-8 (Version None)
Quarter: 2004Q4

REPORT INFORMATION
  Report Type: 
  Country: None (occurrence: None)
  Receive Date: 20041117
  Receipt Date: 20041105
  Transmission Date: 20050328
  Serious: Yes (Hospitalization, Other)
  Sender: FDA-Public Use
  Company Number: 2004088414

PATIENT
  Age: 41 Year
  Sex: Male
  Weight: 81.6475 kg

DRUGS (1)
  1. LISTERINE ANTISEPTIC MOUTHWASH (MENTHOL, METHYL SALICYLATE, EUCALYPTOL [Suspect]
     Indication: PAIN
     Dosage: AT LEAST 1 BOTTLE EACH TIME, ORAL
     Route: 048

REACTIONS (3)
  - DYSARTHRIA [None]
  - INCOHERENT [None]
  - LOSS OF CONSCIOUSNESS [None]
